FAERS Safety Report 24268362 (Version 1)
Quarter: 2024Q3

REPORT INFORMATION
  Report Type: Spontaneous
  Country: DK (occurrence: DK)
  Receive Date: 20240830
  Receipt Date: 20240830
  Transmission Date: 20241017
  Serious: Yes (Hospitalization, Other)
  Sender: BAXTER
  Company Number: None

PATIENT
  Age: 17 Year
  Sex: Female
  Weight: 109 kg

DRUGS (9)
  1. ACETAMINOPHEN [Suspect]
     Active Substance: ACETAMINOPHEN
     Indication: Suicide attempt
     Dosage: (PARACETAMOL AMOUNT) (DOSAGE TEXT: STRENGTH: UNKNOWN.DOSE: UNKNOWN)
     Route: 065
     Dates: start: 20240304, end: 20240304
  2. WEGOVY [Concomitant]
     Active Substance: SEMAGLUTIDE
     Indication: Overweight
     Dosage: 0.25 MG, 1 WEEK (DOSAGE FORM: SOLUTION FOR INJECTION IN PRE-FILLED PEN)
     Route: 058
     Dates: start: 20240221
  3. METHYLPHENIDATE HYDROCHLORIDE [Concomitant]
     Active Substance: METHYLPHENIDATE HYDROCHLORIDE
     Indication: Attention deficit hyperactivity disorder
     Dosage: 10 MG, 1 DAY
     Route: 065
     Dates: start: 20230116
  4. CETIRIZINE HYDROCHLORIDE [Concomitant]
     Active Substance: CETIRIZINE HYDROCHLORIDE
     Indication: Urticaria
     Dosage: 10 MG (DOSAGE TEXT: MAXIMUM DAILY DOSE: 10 MG)
     Route: 065
     Dates: start: 20230720
  5. SERTRALINE [Concomitant]
     Active Substance: SERTRALINE HYDROCHLORIDE
     Indication: Post-traumatic stress disorder
     Dosage: 200 MG, 1 DAY
     Route: 065
     Dates: start: 20230414
  6. QUETIAPINE FUMARATE [Concomitant]
     Active Substance: QUETIAPINE FUMARATE
     Indication: Mental disorder
     Dosage: 100 MG (DOSAGE TEXT: MAXIMUM DAILY DOSE: 200 MG)
     Route: 065
     Dates: start: 20231025
  7. ALBUTEROL SULFATE [Concomitant]
     Active Substance: ALBUTEROL SULFATE
     Indication: Asthma
     Dosage: (BUVENTOL EASYHALER) 200 UG (DOSAGE TEXT: MAXIMUM DAILY DOSE: 1600 ?G)
     Route: 065
     Dates: start: 20230116
  8. ETHINYL ESTRADIOL\LEVONORGESTREL [Concomitant]
     Active Substance: ETHINYL ESTRADIOL\LEVONORGESTREL
     Indication: Contraception
     Dosage: 1 DF (DOSAGE FORM), 1 DAY
     Route: 065
     Dates: start: 20230405
  9. METHYLPHENIDATE [Concomitant]
     Active Substance: METHYLPHENIDATE
     Indication: Attention deficit hyperactivity disorder
     Dosage: 36 MG, 1 DAY (DOSAGE TEXT: STRENGTH: 36 MG)
     Route: 065
     Dates: start: 20230120

REACTIONS (5)
  - Analgesic drug level increased [Recovered/Resolved]
  - Suicide attempt [Recovered/Resolved]
  - Intentional overdose [Recovered/Resolved]
  - Blood alkaline phosphatase increased [Recovered/Resolved]
  - Alanine aminotransferase increased [Recovered/Resolved]

NARRATIVE: CASE EVENT DATE: 20240304
